FAERS Safety Report 12889874 (Version 1)
Quarter: 2016Q4

REPORT INFORMATION
  Report Type: Report from Study
  Country: FR (occurrence: FR)
  Receive Date: 20161027
  Receipt Date: 20161027
  Transmission Date: 20170207
  Serious: Yes (Hospitalization, Other)
  Sender: FDA-Public Use
  Company Number: FR-B. BRAUN MEDICAL INC.-1058961

PATIENT
  Age: 84 Year
  Sex: Female

DRUGS (1)
  1. METRONIDAZOLE. [Suspect]
     Active Substance: METRONIDAZOLE
     Indication: CLOSTRIDIUM DIFFICILE COLITIS
     Route: 048

REACTIONS (3)
  - Ataxia [Recovered/Resolved]
  - Dysarthria [Recovered/Resolved]
  - Encephalopathy [Unknown]
